FAERS Safety Report 17675842 (Version 4)
Quarter: 2020Q2

REPORT INFORMATION
  Report Type: Spontaneous
  Country: US (occurrence: US)
  Receive Date: 20200416
  Receipt Date: 20200526
  Transmission Date: 20200714
  Serious: No
  Sender: FDA-Public Use
  Company Number: US-JNJFOC-20200415540

PATIENT
  Age: 50 Year
  Sex: Male
  Weight: 120.31 kg

DRUGS (2)
  1. STELARA [Suspect]
     Active Substance: USTEKINUMAB
     Indication: PRODUCT USED FOR UNKNOWN INDICATION
     Route: 058
     Dates: start: 202002
  2. STELARA [Suspect]
     Active Substance: USTEKINUMAB

REACTIONS (7)
  - Product storage error [Unknown]
  - Device issue [Unknown]
  - Arthritis [Unknown]
  - Influenza [Unknown]
  - Psoriasis [Unknown]
  - Product dose omission [Unknown]
  - Accidental exposure to product [Unknown]

NARRATIVE: CASE EVENT DATE: 2020
